FAERS Safety Report 9533260 (Version 1)
Quarter: 2013Q3

REPORT INFORMATION
  Report Type: Spontaneous
  Country: DK (occurrence: DK)
  Receive Date: 20130918
  Receipt Date: 20130918
  Transmission Date: 20140515
  Serious: Yes (Hospitalization)
  Sender: FDA-Public Use
  Company Number: DK-TEVA-430800ISR

PATIENT
  Age: 15 Year
  Sex: Female
  Weight: 49.2 kg

DRUGS (4)
  1. PROGLYCEM ^TEVA/GATE^ [Suspect]
     Indication: HYPOGLYCAEMIA
     Dosage: 50 MILLIGRAM DAILY; 1/1 DAYS
     Route: 048
     Dates: start: 20120116
  2. PROGLYCEM ^TEVA/GATE^ [Suspect]
     Dosage: 50 MILLIGRAM DAILY; 1/1 DAYS
     Route: 048
     Dates: start: 20120320
  3. MICROGYN [Suspect]
     Indication: DYSMENORRHOEA
     Dosage: 1 DOSAGE FORMS DAILY; 1/1 DAYS
     Route: 048
     Dates: start: 20130116
  4. SANDOSTATIN LAR [Suspect]
     Indication: HYPOGLYCAEMIA
     Dosage: 1/4 WEEKS
     Route: 030
     Dates: start: 20120418

REACTIONS (3)
  - Bone cyst [Unknown]
  - Fracture [Unknown]
  - Fall [Unknown]
